FAERS Safety Report 10094271 (Version 1)
Quarter: 2014Q2

REPORT INFORMATION
  Report Type: Spontaneous
  Country: US (occurrence: None)
  Receive Date: 20140421
  Receipt Date: 20140421
  Transmission Date: 20141212
  Serious: No
  Sender: FDA-Public Use
  Company Number: None

PATIENT
  Age: 63 Year
  Sex: Female
  Weight: 81.19 kg

DRUGS (1)
  1. PRAVACHOL [Suspect]
     Indication: BLOOD CHOLESTEROL INCREASED
     Route: 048

REACTIONS (12)
  - Vomiting [None]
  - Nausea [None]
  - Diarrhoea [None]
  - Fatigue [None]
  - Vision blurred [None]
  - Headache [None]
  - Arthralgia [None]
  - Rash [None]
  - Renal pain [None]
  - Chromaturia [None]
  - Flushing [None]
  - Erythema [None]
